FAERS Safety Report 15622105 (Version 2)
Quarter: 2019Q1

REPORT INFORMATION
  Report Type: Spontaneous
  Country: CA (occurrence: CA)
  Receive Date: 20181115
  Receipt Date: 20190211
  Transmission Date: 20190417
  Serious: Yes (Life-Threatening, Other)
  Sender: FDA-Public Use
  Company Number: CA-SA-2018SA311482

PATIENT
  Age: 81 Year
  Sex: Female
  Weight: 57 kg

DRUGS (13)
  1. SYNTHROID [Concomitant]
     Active Substance: LEVOTHYROXINE SODIUM
  2. PROBIOTICS NOS [Concomitant]
     Active Substance: PROBIOTICS NOS
  3. XANAX [Concomitant]
     Active Substance: ALPRAZOLAM
     Dosage: HALF TABLET UNK
  4. XANAX [Concomitant]
     Active Substance: ALPRAZOLAM
     Dosage: 2 TABLET
  5. PLAVIX [Concomitant]
     Active Substance: CLOPIDOGREL BISULFATE
  6. TYLENOL [Concomitant]
     Active Substance: ACETAMINOPHEN
  7. MORINGA [ASCORBIC ACID;MORINGA OLEIFERA] [Suspect]
     Active Substance: ASCORBIC ACID\HERBALS\MORINGA OLEIFERA LEAF
     Indication: IMMUNE SYSTEM DISORDER
     Dosage: 4-5 TABLET ONCE, QD
     Route: 048
     Dates: start: 20161026
  8. NORVASC [Concomitant]
     Active Substance: AMLODIPINE BESYLATE
  9. LIPITOR [Concomitant]
     Active Substance: ATORVASTATIN CALCIUM
  10. AVAPRO [Suspect]
     Active Substance: IRBESARTAN
  11. DICLOFENAC SODIUM. [Concomitant]
     Active Substance: DICLOFENAC SODIUM
  12. LAXATIVE [BISACODYL] [Concomitant]
  13. LYRICA [Concomitant]
     Active Substance: PREGABALIN

REACTIONS (9)
  - Hyperhidrosis [Not Recovered/Not Resolved]
  - Blood pressure increased [Not Recovered/Not Resolved]
  - Malaise [Not Recovered/Not Resolved]
  - Diarrhoea [Not Recovered/Not Resolved]
  - Nausea [Not Recovered/Not Resolved]
  - Insomnia [Not Recovered/Not Resolved]
  - Drug ineffective [Unknown]
  - Headache [Not Recovered/Not Resolved]
  - Vomiting [Not Recovered/Not Resolved]
